FAERS Safety Report 25954260 (Version 2)
Quarter: 2025Q4

REPORT INFORMATION
  Report Type: Report from Study
  Country: CA (occurrence: CA)
  Receive Date: 20251023
  Receipt Date: 20251113
  Transmission Date: 20260118
  Serious: Yes (Death)
  Sender: HLS THERAPEUTICS
  Company Number: CA-HLS-202502736

PATIENT
  Age: 76 Year
  Sex: Male

DRUGS (4)
  1. CLOZARIL [Suspect]
     Active Substance: CLOZAPINE
     Indication: Schizoaffective disorder
     Dosage: 37.5MG BID, 31.5 AT NOON
     Route: 048
     Dates: start: 20220207, end: 20250925
  2. LORAZEPAM [Concomitant]
     Active Substance: LORAZEPAM
     Indication: Product used for unknown indication
     Route: 058
     Dates: start: 20220629, end: 20250925
  3. Maintena [Concomitant]
     Indication: Schizoaffective disorder
     Route: 030
     Dates: start: 20220629, end: 20250925
  4. ARIPIPRAZOLE [Concomitant]
     Active Substance: ARIPIPRAZOLE
     Indication: Schizoaffective disorder
     Route: 048
     Dates: start: 20220629, end: 20250925

REACTIONS (1)
  - Chronic obstructive pulmonary disease [Fatal]

NARRATIVE: CASE EVENT DATE: 20250922
